FAERS Safety Report 15327941 (Version 2)
Quarter: 2019Q3

REPORT INFORMATION
  Report Type: Spontaneous
  Country: US (occurrence: US)
  Receive Date: 20180828
  Receipt Date: 20190910
  Transmission Date: 20191004
  Serious: No
  Sender: FDA-Public Use
  Company Number: US-ROCHE-2147204

PATIENT
  Age: 46 Year
  Sex: Female

DRUGS (2)
  1. PEGASYS [Suspect]
     Active Substance: PEGINTERFERON ALFA-2A
     Indication: THROMBOCYTOSIS
     Dosage: 13/FEB/2015 THE PATIENT RECEIVED SAME SUBSEQUENT DOSE
     Route: 058
     Dates: start: 20141117
  2. PEGASYS [Suspect]
     Active Substance: PEGINTERFERON ALFA-2A
     Indication: RENAL CANCER

REACTIONS (5)
  - Abdominal pain upper [Unknown]
  - Muscle spasms [Unknown]
  - Diarrhoea [Unknown]
  - Off label use [Unknown]
  - Intentional product use issue [Unknown]

NARRATIVE: CASE EVENT DATE: 20180627
